FAERS Safety Report 4700539-5 (Version None)
Quarter: 2005Q2

REPORT INFORMATION
  Report Type: 
  Country: None (occurrence: None)
  Receive Date: 20050627
  Receipt Date: 20050627
  Transmission Date: 20051028
  Serious: Yes (Hospitalization)
  Sender: FDA-Public Use
  Company Number: None

PATIENT
  Age: 79 Year
  Sex: Male
  Weight: 83.9 kg

DRUGS (1)
  1. DIGOXIN [Suspect]
     Indication: CARDIAC FAILURE CONGESTIVE
     Dosage: 0.125 MG  DAILY  ORAL
     Route: 048
     Dates: start: 19990101, end: 20050623

REACTIONS (4)
  - ATRIAL FIBRILLATION [None]
  - DECREASED APPETITE [None]
  - DIZZINESS [None]
  - ELECTROCARDIOGRAM ST SEGMENT ABNORMAL [None]
